FAERS Safety Report 10262424 (Version 1)
Quarter: 2014Q2

REPORT INFORMATION
  Report Type: Other
  Country: DE (occurrence: DE)
  Receive Date: 20140626
  Receipt Date: 20140626
  Transmission Date: 20141212
  Serious: Yes (Death)
  Sender: FDA-Public Use
  Company Number: DE-NAPPMUNDI-GBR-2014-0018915

PATIENT
  Age: 62 Year
  Sex: Female

DRUGS (6)
  1. MORPHINE SULFATE [Suspect]
     Indication: CANCER PAIN
     Route: 048
  2. INSULIN LISPRO [Suspect]
     Indication: COMPLETED SUICIDE
     Dosage: 2 AMPULE, SINGLE
     Route: 042
  3. FENTANYL [Suspect]
     Indication: PRODUCT USED FOR UNKNOWN INDICATION
     Dosage: 150 MCG, UNK
     Route: 062
  4. CITALOPRAM [Suspect]
     Indication: PRODUCT USED FOR UNKNOWN INDICATION
  5. METOCLOPRAMIDE [Concomitant]
     Indication: NAUSEA
  6. METOCLOPRAMIDE [Concomitant]
     Indication: DIARRHOEA

REACTIONS (2)
  - Completed suicide [Fatal]
  - Hypoglycaemia [Fatal]
